FAERS Safety Report 7866826-7 (Version None)
Quarter: 2011Q4

REPORT INFORMATION
  Report Type: 
  Country: None (occurrence: None)
  Receive Date: 20111028
  Receipt Date: 20110830
  Transmission Date: 20120403
  Serious: No
  Sender: FDA-Public Use
  Company Number: US-GLAXOSMITHKLINE-A0942860A

PATIENT
  Age: 40 Year
  Sex: Female

DRUGS (12)
  1. ASPIRIN [Concomitant]
  2. ADVAIR DISKUS 100/50 [Suspect]
     Indication: ASTHMA
     Dosage: 1PUFF TWICE PER DAY
     Route: 055
     Dates: start: 20101101, end: 20110401
  3. LANTUS [Concomitant]
  4. NOVOLOG [Concomitant]
  5. DILTIAZEM HCL [Concomitant]
  6. NEXIUM [Concomitant]
  7. VENTOLIN [Concomitant]
  8. ULTRAM [Concomitant]
  9. TRAZODONE HYDROCHLORIDE [Concomitant]
  10. REQUIP [Concomitant]
  11. ONGLYZA [Concomitant]
  12. NEURONTIN [Concomitant]

REACTIONS (2)
  - VOMITING [None]
  - RETCHING [None]
